FAERS Safety Report 6764022-8 (Version None)
Quarter: 2010Q2

REPORT INFORMATION
  Report Type: 
  Country: None (occurrence: None)
  Receive Date: 20100610
  Receipt Date: 20090615
  Transmission Date: 20101027
  Serious: No
  Sender: FDA-Public Use
  Company Number: US-ASTRAZENECA-2009UW15267

PATIENT
  Age: 67 Year
  Sex: Female
  Weight: 65.8 kg

DRUGS (3)
  1. FASLODEX [Suspect]
     Indication: BREAST CANCER STAGE III
     Route: 030
     Dates: start: 20021001
  2. TRYROID [Concomitant]
     Indication: THYROID DISORDER
  3. DYAZIDE [Concomitant]
     Indication: HYPERTENSION

REACTIONS (5)
  - ARTHRITIS [None]
  - BACK PAIN [None]
  - HOT FLUSH [None]
  - INJECTION SITE SCAR [None]
  - THYROID DISORDER [None]
